FAERS Safety Report 11451012 (Version 1)
Quarter: 2015Q3

REPORT INFORMATION
  Report Type: Spontaneous
  Country: AU (occurrence: AU)
  Receive Date: 20150903
  Receipt Date: 20150903
  Transmission Date: 20151125
  Serious: Yes (Other)
  Sender: FDA-Public Use
  Company Number: AU-CIPLA LTD.-2015AU07101

PATIENT

DRUGS (6)
  1. VINCRISTINE [Suspect]
     Active Substance: VINCRISTINE
     Indication: GLIOMA
     Route: 065
  2. BEVACIZUMAB [Suspect]
     Active Substance: BEVACIZUMAB
     Indication: GLIOMA
     Dosage: 10 MG/KG, EVERY 2 WEEKS FOR 10 MONTHS
     Route: 042
  3. IRINOTECAN [Suspect]
     Active Substance: IRINOTECAN
     Indication: GLIOMA
     Dosage: 125 TO 150 MG/M2 EVERY 2 WEEKS FOR 10 MONTHS
     Route: 042
  4. TEMOZOLOMIDE. [Suspect]
     Active Substance: TEMOZOLOMIDE
     Indication: GLIOMA
     Dosage: UNK FOR FOR 12 MONTHS
     Route: 065
  5. CARBOPLATIN. [Suspect]
     Active Substance: CARBOPLATIN
     Indication: GLIOMA
     Route: 065
  6. PROCARBAZINE [Suspect]
     Active Substance: PROCARBAZINE
     Indication: GLIOMA
     Dosage: UNK FOR 12 MONTHS
     Route: 065

REACTIONS (4)
  - Visual impairment [Unknown]
  - Endocrine disorder [Unknown]
  - Treatment failure [Unknown]
  - Disease progression [Unknown]
